FAERS Safety Report 8059049-2 (Version None)
Quarter: 2012Q1

REPORT INFORMATION
  Report Type: 
  Country: None (occurrence: None)
  Receive Date: 20120120
  Receipt Date: 20110516
  Transmission Date: 20120608
  Serious: No
  Sender: FDA-Public Use
  Company Number: US-BAUSCH-2011BL003484

PATIENT
  Age: 59 Year
  Sex: Female

DRUGS (11)
  1. ALAWAY [Suspect]
     Indication: EYE PRURITUS
     Route: 047
     Dates: start: 20110416, end: 20110401
  2. CLARITIN /USA/ [Concomitant]
  3. OPCON-A [Concomitant]
  4. BEPREVE [Concomitant]
  5. ALAWAY [Suspect]
     Indication: LACRIMATION INCREASED
     Route: 047
     Dates: start: 20110416, end: 20110401
  6. ALAWAY [Suspect]
     Route: 047
     Dates: start: 20110401, end: 20110401
  7. NAPHCON-A [Concomitant]
  8. ALAWAY [Suspect]
     Route: 047
     Dates: start: 20110401, end: 20110401
  9. BENADRYL [Concomitant]
  10. ZYRTEC [Concomitant]
  11. ALLEGRA [Concomitant]

REACTIONS (2)
  - DRUG EFFECT DECREASED [None]
  - INCORRECT DOSE ADMINISTERED [None]
